FAERS Safety Report 6553972-3 (Version None)
Quarter: 2010Q1

REPORT INFORMATION
  Report Type: 
  Country: None (occurrence: None)
  Receive Date: 20100125
  Receipt Date: 20100114
  Transmission Date: 20100710
  Serious: No
  Sender: FDA-Public Use
  Company Number: 20107983

PATIENT
  Age: 52 Year
  Sex: Male

DRUGS (3)
  1. LIORESAL [Suspect]
     Indication: MUSCLE SPASTICITY
     Dosage: MCG, DAILY, INTRATHECAL
     Route: 037
  2. FENTANYL-100 [Concomitant]
  3. CLONIDINE [Concomitant]

REACTIONS (5)
  - FALL [None]
  - IMPLANT SITE INFECTION [None]
  - LACERATION [None]
  - SCAB [None]
  - SKIN EROSION [None]
